FAERS Safety Report 4410443-8 (Version None)
Quarter: 2004Q3

REPORT INFORMATION
  Report Type: 
  Country: None (occurrence: None)
  Receive Date: 20040728
  Receipt Date: 20040707
  Transmission Date: 20050211
  Serious: Yes (Death, Other)
  Sender: FDA-Public Use
  Company Number: US-MERCK-0407USA00645

PATIENT
  Age: 50 Year
  Sex: Male

DRUGS (5)
  1. [THERAPY UNSPECIFIED] [Concomitant]
     Route: 065
  2. [THERAPY UNSPECIFIED] [Concomitant]
     Route: 065
  3. OXYCONTIN [Concomitant]
     Route: 065
  4. VIOXX [Suspect]
     Indication: BACK PAIN
     Route: 048
     Dates: start: 20020101, end: 20020101
  5. VIOXX [Suspect]
     Route: 048
     Dates: start: 20020101, end: 20020101

REACTIONS (3)
  - ARTHROPATHY [None]
  - CARDIAC DISORDER [None]
  - DEATH [None]
